FAERS Safety Report 18851887 (Version 1)
Quarter: 2021Q1

REPORT INFORMATION
  Report Type: Spontaneous
  Country: US (occurrence: US)
  Receive Date: 20210205
  Receipt Date: 20210205
  Transmission Date: 20210420
  Serious: Yes (Hospitalization)
  Sender: FDA-Public Use
  Company Number: None

PATIENT
  Age: 53 Year
  Sex: Female
  Weight: 84.2 kg

DRUGS (2)
  1. ETOPOSIDE (VP?16) [Concomitant]
     Active Substance: ETOPOSIDE
     Dates: end: 20210102
  2. CISPLATIN (119875) [Suspect]
     Active Substance: CISPLATIN
     Dates: end: 20210104

REACTIONS (19)
  - Paranoia [None]
  - Aspartate aminotransferase increased [None]
  - Depressed level of consciousness [None]
  - Neutropenia [None]
  - Electrolyte imbalance [None]
  - Meningitis viral [None]
  - Dehydration [None]
  - Vomiting [None]
  - Adverse drug reaction [None]
  - Alanine aminotransferase increased [None]
  - Hallucination [None]
  - Oesophagitis [None]
  - Acute kidney injury [None]
  - Tachycardia [None]
  - Metastatic neoplasm [None]
  - Cognitive disorder [None]
  - Hypertension [None]
  - Hypotension [None]
  - Blood lactic acid increased [None]

NARRATIVE: CASE EVENT DATE: 20210203
